FAERS Safety Report 6239272-X (Version None)
Quarter: 2009Q2

REPORT INFORMATION
  Report Type: 
  Country: None (occurrence: None)
  Receive Date: 20090622
  Receipt Date: 20090611
  Transmission Date: 20091009
  Serious: Yes (Hospitalization)
  Sender: FDA-Public Use
  Company Number: FR-BAUSCH-2009BL002890

PATIENT
  Age: 89 Year
  Sex: Female

DRUGS (5)
  1. CARTEOL 1% COLLYRE [Suspect]
     Indication: GLAUCOMA
     Route: 047
     Dates: end: 20070830
  2. MOPRAL [Suspect]
     Indication: GASTROOESOPHAGEAL REFLUX DISEASE
  3. PROPOFAN /00765201/ [Suspect]
     Indication: PAIN
     Route: 048
  4. NEORECORMON ^ROCHE^ [Concomitant]
     Indication: ANAEMIA
     Route: 058
  5. VITAMIN A [Concomitant]
     Route: 048

REACTIONS (2)
  - DEHYDRATION [None]
  - DIZZINESS [None]
